FAERS Safety Report 14873556 (Version 7)
Quarter: 2019Q1

REPORT INFORMATION
  Report Type: Spontaneous
  Country: GB (occurrence: GB)
  Receive Date: 20180510
  Receipt Date: 20190108
  Transmission Date: 20190417
  Serious: Yes (Hospitalization, Other)
  Sender: FDA-Public Use
  Company Number: GB-CONCORDIA PHARMACEUTICALS INC.-E2B_00011602

PATIENT
  Age: 33 Year
  Sex: Male

DRUGS (3)
  1. MESALAZINE [Concomitant]
     Active Substance: MESALAMINE
     Indication: COLITIS ULCERATIVE
  2. PREDNISOLONE. [Suspect]
     Active Substance: PREDNISOLONE
     Indication: COLITIS ULCERATIVE
     Route: 048
  3. 6-MERCAPTOPURINE [Suspect]
     Active Substance: MERCAPTOPURINE
     Indication: COLITIS ULCERATIVE
     Route: 065

REACTIONS (5)
  - Bone marrow failure [Recovered/Resolved]
  - Hepatitis [Recovered/Resolved]
  - Cytomegalovirus infection [Recovered/Resolved]
  - Sepsis [Unknown]
  - Cytomegalovirus colitis [Recovered/Resolved]
